FAERS Safety Report 6428671-9 (Version None)
Quarter: 2009Q4

REPORT INFORMATION
  Report Type: 
  Country: None (occurrence: None)
  Receive Date: 20091105
  Receipt Date: 20091027
  Transmission Date: 20100525
  Serious: Yes (Hospitalization, Other)
  Sender: FDA-Public Use
  Company Number: US-JNJFOC-20090707569

PATIENT
  Sex: Female
  Weight: 72.12 kg

DRUGS (19)
  1. DURAGESIC-100 [Suspect]
     Route: 062
  2. DURAGESIC-100 [Suspect]
     Route: 062
  3. DURAGESIC-100 [Suspect]
     Route: 062
  4. DURAGESIC-100 [Suspect]
     Route: 062
  5. DURAGESIC-100 [Suspect]
     Indication: NEURALGIA
     Route: 062
  6. NEURONTIN [Concomitant]
     Indication: NEURALGIA
     Route: 048
  7. PERCOCET [Concomitant]
     Indication: PAIN
     Dosage: 10-325MG
     Route: 048
  8. PHENERGAN HCL [Concomitant]
     Indication: OESOPHAGEAL ULCER
     Route: 048
  9. SOMA [Concomitant]
     Indication: MUSCLE SPASMS
     Route: 048
  10. ZANTAC [Concomitant]
     Indication: GASTROOESOPHAGEAL REFLUX DISEASE
     Route: 048
  11. CRESTOR [Concomitant]
     Indication: BLOOD CHOLESTEROL
     Route: 048
  12. DIPHENHYDRAMINE [Concomitant]
     Indication: SLEEP DISORDER
     Route: 048
  13. FIBER SUPPLEMENT [Concomitant]
     Indication: MEDICAL DIET
     Route: 048
  14. PERCOCET [Concomitant]
     Indication: BREAKTHROUGH PAIN
     Dosage: DOSE: 5/325 MG A DAY
     Route: 048
  15. XANAX [Concomitant]
     Indication: ANXIETY
     Route: 048
  16. ADVAIR DISKUS 100/50 [Concomitant]
     Indication: CHRONIC OBSTRUCTIVE PULMONARY DISEASE
     Route: 055
  17. DUONEB [Concomitant]
     Indication: BRONCHITIS
     Route: 055
  18. RITALIN [Concomitant]
     Indication: FATIGUE
     Route: 048
  19. MILK OF MAGNESIA TAB [Concomitant]
     Indication: GASTROOESOPHAGEAL REFLUX DISEASE
     Route: 048

REACTIONS (23)
  - ABDOMINAL PAIN [None]
  - ABNORMAL LOSS OF WEIGHT [None]
  - ANXIETY [None]
  - AORTIC CALCIFICATION [None]
  - APPENDICITIS PERFORATED [None]
  - APPLICATION SITE PRURITUS [None]
  - APPLICATION SITE RASH [None]
  - APPLICATION SITE REACTION [None]
  - APPLICATION SITE ULCER [None]
  - BLADDER DISORDER [None]
  - BLADDER PROLAPSE [None]
  - CHEST PAIN [None]
  - COLITIS [None]
  - DEPRESSION [None]
  - DEVICE BREAKAGE [None]
  - DRUG EFFECT DECREASED [None]
  - DRUG PRESCRIBING ERROR [None]
  - HYPERHIDROSIS [None]
  - INSOMNIA [None]
  - INTESTINAL PROLAPSE [None]
  - PAIN IN EXTREMITY [None]
  - VITAMIN D DEFICIENCY [None]
  - WITHDRAWAL SYNDROME [None]
